FAERS Safety Report 15733490 (Version 2)
Quarter: 2018Q4

REPORT INFORMATION
  Report Type: Spontaneous
  Country: JP (occurrence: JP)
  Receive Date: 20181218
  Receipt Date: 20181221
  Transmission Date: 20190205
  Serious: Yes (Hospitalization, Other)
  Sender: FDA-Public Use
  Company Number: JP-ROCHE-2232141

PATIENT
  Age: 4 Decade
  Sex: Female

DRUGS (5)
  1. CELLCEPT [Suspect]
     Active Substance: MYCOPHENOLATE MOFETIL\MYCOPHENOLATE MOFETIL HYDROCHLORIDE
     Indication: SYSTEMIC LUPUS ERYTHEMATOSUS
     Dosage: DOSAGE IS UNCERTAIN.
     Route: 048
  2. TACROLIMUS HYDRATE [Concomitant]
     Active Substance: TACROLIMUS
     Indication: SYSTEMIC LUPUS ERYTHEMATOSUS
     Dosage: DOSAGE IS UNCERTAIN.
     Route: 065
  3. MIZORIBINE [Concomitant]
     Active Substance: MIZORIBINE
     Indication: SYSTEMIC LUPUS ERYTHEMATOSUS
     Dosage: DOSAGE IS UNCERTAIN.
     Route: 065
  4. HYDROXYCHLOROQUINE SULFATE. [Concomitant]
     Active Substance: HYDROXYCHLOROQUINE SULFATE
     Indication: SYSTEMIC LUPUS ERYTHEMATOSUS
     Dosage: DOSAGE IS UNCERTAIN.
     Route: 065
  5. CYCLOPHOSPHAMIDE. [Concomitant]
     Active Substance: CYCLOPHOSPHAMIDE
     Indication: SYSTEMIC LUPUS ERYTHEMATOSUS
     Dosage: DOSAGE IS UNCERTAIN.
     Route: 065

REACTIONS (3)
  - Lung adenocarcinoma [Recovering/Resolving]
  - Drug eruption [Unknown]
  - Off label use [Unknown]
